FAERS Safety Report 20963870 (Version 2)
Quarter: 2022Q2

REPORT INFORMATION
  Report Type: Spontaneous
  Country: PL (occurrence: PL)
  Receive Date: 20220615
  Receipt Date: 20220627
  Transmission Date: 20220720
  Serious: Yes (Death, Other)
  Sender: FDA-Public Use
  Company Number: PL-BAXTER-2022BAX011939

PATIENT
  Sex: Male

DRUGS (8)
  1. MANNITOL [Suspect]
     Active Substance: MANNITOL
     Route: 065
  2. DEXTROSE [Suspect]
     Active Substance: DEXTROSE
     Route: 065
  3. SODIUM CHLORIDE [Suspect]
     Active Substance: SODIUM CHLORIDE
     Route: 065
  4. SODIUM BENZOATE [Concomitant]
     Active Substance: SODIUM BENZOATE
     Route: 065
  5. SODIUM PHENYLBUTYRATE [Concomitant]
     Active Substance: SODIUM PHENYLBUTYRATE
     Route: 065
  6. ARGININE [Concomitant]
     Active Substance: ARGININE
     Route: 065
  7. AMIODARONE [Concomitant]
     Active Substance: AMIODARONE
     Indication: Arrhythmia
     Route: 065
  8. PROPRANOLOL [Concomitant]
     Active Substance: PROPRANOLOL HYDROCHLORIDE
     Indication: Arrhythmia

REACTIONS (2)
  - Brain oedema [Fatal]
  - Drug ineffective [Unknown]
